FAERS Safety Report 22139074 (Version 1)
Quarter: 2023Q1

REPORT INFORMATION
  Report Type: Spontaneous
  Country: US (occurrence: US)
  Receive Date: 20230327
  Receipt Date: 20230327
  Transmission Date: 20230418
  Serious: Yes (Other)
  Sender: FDA-Public Use
  Company Number: US-CELLTRION INC.-2023US006116

PATIENT

DRUGS (1)
  1. INFLECTRA [Suspect]
     Active Substance: INFLIXIMAB-DYYB
     Indication: Crohn^s disease

REACTIONS (6)
  - Throat tightness [Unknown]
  - Hypersensitivity [Unknown]
  - Chest discomfort [Unknown]
  - Dyspnoea [Unknown]
  - Vomiting [Unknown]
  - Syncope [Unknown]
